FAERS Safety Report 23506848 (Version 4)
Quarter: 2024Q2

REPORT INFORMATION
  Report Type: Spontaneous
  Country: JP (occurrence: JP)
  Receive Date: 20240209
  Receipt Date: 20240617
  Transmission Date: 20240716
  Serious: Yes (Other)
  Sender: FDA-Public Use
  Company Number: JP-GENMAB-2024-00317

PATIENT
  Age: 76 Year
  Sex: Male
  Weight: 60 kg

DRUGS (8)
  1. EPKINLY [Suspect]
     Active Substance: EPCORITAMAB-BYSP
     Indication: Diffuse large B-cell lymphoma refractory
     Dosage: 0.16 MILLIGRAM, SINGLE
     Route: 058
     Dates: start: 20240116, end: 20240116
  2. EPKINLY [Suspect]
     Active Substance: EPCORITAMAB-BYSP
     Dosage: 0.8 MILLIGRAM, SINGLE
     Route: 058
     Dates: start: 20240123, end: 20240123
  3. EPKINLY [Suspect]
     Active Substance: EPCORITAMAB-BYSP
     Dosage: 48 MILLIGRAM
     Route: 058
     Dates: start: 20240130, end: 20240130
  4. EPKINLY [Suspect]
     Active Substance: EPCORITAMAB-BYSP
     Dosage: 48 MILLIGRAM
     Route: 058
     Dates: start: 20240213, end: 20240514
  5. PREDONINE [Concomitant]
     Active Substance: PREDNISOLONE
     Indication: Prophylaxis
     Dosage: 100 MILLIGRAM,ON DAY 1, DAY 2, DAY 3 AND DAY 4 OF ADMINISTRATION OF EPKINLY(FROM FIRST TO SECOND ADM
     Dates: start: 20240116, end: 20240126
  6. PREDONINE [Concomitant]
     Active Substance: PREDNISOLONE
     Dosage: UNK, ON DAY 2, DAY 3 AND DAY 4 OF ADMINISTRATION OF EPKINLY(FROM THIRD TO FOURTH ADMINISTRATION IN C
     Dates: start: 20240131, end: 20240216
  7. POLARAMINE [Concomitant]
     Active Substance: DEXCHLORPHENIRAMINE MALEATE
     Indication: Prophylaxis
     Dosage: 2 MILLIGRAM, ON DAY 1 OF ADMINISTRATION OF EPKINLY
     Dates: start: 20240116, end: 20240213
  8. CALONAL [Concomitant]
     Active Substance: ACETAMINOPHEN
     Indication: Prophylaxis
     Dosage: 1000 MILLIGRAM, ON DAY 1 OF ADMINISTRATION OF EPKINLY
     Dates: start: 20240116, end: 20240213

REACTIONS (2)
  - Malignant neoplasm progression [Unknown]
  - Cytokine release syndrome [Recovered/Resolved]

NARRATIVE: CASE EVENT DATE: 20240101
